FAERS Safety Report 7908573-9 (Version None)
Quarter: 2011Q4

REPORT INFORMATION
  Report Type: 
  Country: None (occurrence: None)
  Receive Date: 20111111
  Receipt Date: 20111109
  Transmission Date: 20120403
  Serious: Yes (Disabling, Other)
  Sender: FDA-Public Use
  Company Number: US-PFIZER INC-2011275259

PATIENT
  Sex: Male

DRUGS (1)
  1. ZOLOFT [Suspect]
     Dosage: 1 MG TWO TO THREE TIMES IN A DAY AS NEEDED
     Route: 064

REACTIONS (5)
  - DYSPNOEA [None]
  - MATERNAL EXPOSURE TIMING UNSPECIFIED [None]
  - ASTHMA [None]
  - GASTROOESOPHAGEAL REFLUX DISEASE [None]
  - GAIT DISTURBANCE [None]
